FAERS Safety Report 7688814-6 (Version None)
Quarter: 2011Q3

REPORT INFORMATION
  Report Type: 
  Country: None (occurrence: None)
  Receive Date: 20110817
  Receipt Date: 20110808
  Transmission Date: 20111222
  Serious: Yes (Other)
  Sender: FDA-Public Use
  Company Number: CA-ASTRAZENECA-2011SE47448

PATIENT
  Age: 68 Year
  Sex: Female

DRUGS (7)
  1. SEROQUEL [Suspect]
     Route: 048
     Dates: start: 20110601
  2. GABAPENTIN [Concomitant]
     Route: 048
  3. VALIUM [Concomitant]
  4. SEROQUEL [Suspect]
     Route: 048
  5. SEROQUEL [Suspect]
     Route: 048
     Dates: start: 20110401
  6. BISOPROLOL FUMARATE [Concomitant]
     Route: 048
  7. CELEXA [Concomitant]
     Route: 048

REACTIONS (6)
  - ARRHYTHMIA [None]
  - MUSCLE CONTRACTIONS INVOLUNTARY [None]
  - ANXIETY [None]
  - NAUSEA [None]
  - PALPITATIONS [None]
  - STRESS [None]
